FAERS Safety Report 5674352-9 (Version None)
Quarter: 2008Q2

REPORT INFORMATION
  Report Type: 
  Country: None (occurrence: None)
  Receive Date: 20080228
  Receipt Date: 20070213
  Transmission Date: 20081010
  Serious: Yes (Hospitalization)
  Sender: FDA-Public Use
  Company Number: 152910USA

PATIENT
  Age: 65 Year
  Sex: Female

DRUGS (9)
  1. HYDROCHLOROTHIAZDE TAB [Suspect]
     Dates: start: 20060101, end: 20060101
  2. INTERFERON BETA-1A [Suspect]
     Indication: MULTIPLE SCLEROSIS
     Dosage: 18.8571 MCG (44 MCG,3 IN 1 WK)
     Dates: start: 20020913
  3. OXCARBAZEPINE [Suspect]
     Indication: TRIGEMINAL NEURALGIA
  4. BLOOD PRESSURE MEDICATION [Suspect]
  5. PREDNISONE 50MG TAB [Concomitant]
  6. IBUPROFEN [Concomitant]
  7. CARBAMAZEPINE [Concomitant]
  8. THEOPHYLLINE [Concomitant]
  9. SERETIDE [Concomitant]

REACTIONS (2)
  - CHRONIC OBSTRUCTIVE PULMONARY DISEASE [None]
  - HYPONATRAEMIA [None]
